FAERS Safety Report 24871802 (Version 1)
Quarter: 2025Q1

REPORT INFORMATION
  Report Type: Spontaneous
  Country: CN (occurrence: CN)
  Receive Date: 20250122
  Receipt Date: 20250122
  Transmission Date: 20250409
  Serious: Yes (Life-Threatening, Hospitalization, Other)
  Sender: ROCHE
  Company Number: CN-ROCHE-10000181947

PATIENT
  Sex: Female

DRUGS (17)
  1. TRASTUZUMAB EMTANSINE [Suspect]
     Active Substance: TRASTUZUMAB EMTANSINE
     Indication: Breast cancer
     Route: 042
     Dates: start: 20240410
  2. TRASTUZUMAB EMTANSINE [Suspect]
     Active Substance: TRASTUZUMAB EMTANSINE
     Dosage: DOSE DECREASED BY 3 MG/KG
     Route: 042
     Dates: start: 20240416
  3. TRASTUZUMAB EMTANSINE [Suspect]
     Active Substance: TRASTUZUMAB EMTANSINE
     Dosage: DOSE DECREASED BY 3 MG/KG
     Route: 042
     Dates: start: 20240430
  4. TRASTUZUMAB EMTANSINE [Suspect]
     Active Substance: TRASTUZUMAB EMTANSINE
     Dosage: DOSE DECREASED BY 2.4 MG/KG
     Route: 042
     Dates: start: 20240703
  5. TRASTUZUMAB EMTANSINE [Suspect]
     Active Substance: TRASTUZUMAB EMTANSINE
     Dosage: 2.4 MG/KG
     Route: 042
     Dates: start: 20240718
  6. TRASTUZUMAB EMTANSINE [Suspect]
     Active Substance: TRASTUZUMAB EMTANSINE
     Dosage: 2.4 MG/KG
     Route: 042
     Dates: start: 20241031
  7. Nifedipine sustained-release tablets [Concomitant]
     Indication: Hypertension
     Route: 048
     Dates: start: 2010
  8. Bromfenac sodium eye drops [Concomitant]
     Indication: Cataract
     Dates: start: 20240710
  9. Bovine basic fibroblast growth factor eye drops [Concomitant]
     Indication: Cataract
     Dates: start: 20240710
  10. GRANULOCYTE COLONY-STIMULATING FACTOR NOS [Concomitant]
     Active Substance: GRANULOCYTE COLONY-STIMULATING FACTOR NOS
     Indication: White blood cell count decreased
     Route: 058
     Dates: start: 20241120
  11. GRANULOCYTE COLONY-STIMULATING FACTOR NOS [Concomitant]
     Active Substance: GRANULOCYTE COLONY-STIMULATING FACTOR NOS
     Indication: Neutrophil count decreased
  12. SODIUM BICARBONATE [Concomitant]
     Active Substance: SODIUM BICARBONATE
     Route: 042
     Dates: start: 20241217
  13. ESOMEPRAZOLE MAGNESIUM [Concomitant]
     Active Substance: ESOMEPRAZOLE MAGNESIUM
     Route: 042
     Dates: start: 20241217
  14. CALCIUM [Concomitant]
     Active Substance: CALCIUM
  15. Vitamin D Chewable Tablets [Concomitant]
     Dosage: 2 TABLETS
     Route: 048
     Dates: start: 20241217
  16. OMEPRAZOLE [Concomitant]
     Active Substance: OMEPRAZOLE
     Route: 048
     Dates: start: 20241218
  17. METHYLPREDNISOLONE [Concomitant]
     Active Substance: METHYLPREDNISOLONE
     Route: 048
     Dates: start: 20241223

REACTIONS (7)
  - Platelet count decreased [Recovered/Resolved]
  - Posterior capsule opacification [Unknown]
  - Hypokalaemia [Unknown]
  - Gingival bleeding [Unknown]
  - Marrow hyperplasia [Unknown]
  - Megakaryocytes decreased [Unknown]
  - Haemorrhage [Unknown]

NARRATIVE: CASE EVENT DATE: 20240416
